FAERS Safety Report 8954349 (Version 2)
Quarter: 2013Q1

REPORT INFORMATION
  Report Type: Spontaneous
  Country: US (occurrence: US)
  Receive Date: 20121207
  Receipt Date: 20130123
  Transmission Date: 20140127
  Serious: Yes (Hospitalization, Other)
  Sender: FDA-Public Use
  Company Number: US-US-EMD SERONO, INC.-7179336

PATIENT
  Age: 53 None
  Sex: Female

DRUGS (4)
  1. REBIF [Suspect]
     Indication: MULTIPLE SCLEROSIS
     Route: 058
     Dates: start: 20120905, end: 20121123
  2. KEPPRA [Concomitant]
     Indication: GRAND MAL CONVULSION
  3. PROZAC [Concomitant]
     Indication: GRAND MAL CONVULSION
  4. KLONOPIN [Concomitant]
     Indication: GRAND MAL CONVULSION

REACTIONS (4)
  - Suicide attempt [Recovering/Resolving]
  - Suicidal ideation [Recovering/Resolving]
  - Depression [Recovering/Resolving]
  - Influenza like illness [Unknown]
